FAERS Safety Report 23630135 (Version 1)
Quarter: 2024Q1

REPORT INFORMATION
  Report Type: Spontaneous
  Country: US (occurrence: US)
  Receive Date: 20240314
  Receipt Date: 20240314
  Transmission Date: 20240410
  Serious: No
  Sender: FDA-Public Use
  Company Number: US-SPRINGWORKS THERAPEUTICS-SW-001152

PATIENT

DRUGS (1)
  1. OGSIVEO [Suspect]
     Active Substance: NIROGACESTAT HYDROBROMIDE
     Indication: Desmoid tumour

REACTIONS (6)
  - Abdominal discomfort [Unknown]
  - Somnolence [Recovering/Resolving]
  - Libido decreased [Unknown]
  - Asthenia [Unknown]
  - Fatigue [Recovering/Resolving]
  - Intentional product use issue [Unknown]
